FAERS Safety Report 12459204 (Version 1)
Quarter: 2016Q2

REPORT INFORMATION
  Report Type: Spontaneous
  Country: US (occurrence: None)
  Receive Date: 20160610
  Receipt Date: 20160610
  Transmission Date: 20160815
  Serious: Yes (Disabling)
  Sender: FDA-Public Use
  Company Number: None

PATIENT
  Age: 38 Year
  Sex: Female
  Weight: 90.72 kg

DRUGS (3)
  1. WELLBUTRON [Concomitant]
  2. SUBOXONE [Suspect]
     Active Substance: BUPRENORPHINE HYDROCHLORIDE\NALOXONE HYDROCHLORIDE
     Dosage: 8-2 MG TID SL
     Route: 060
  3. NUROTIN [Concomitant]

REACTIONS (2)
  - Drug hypersensitivity [None]
  - Exposure during breast feeding [None]

NARRATIVE: CASE EVENT DATE: 201509
